FAERS Safety Report 7513271-X (Version None)
Quarter: 2011Q2

REPORT INFORMATION
  Report Type: 
  Country: None (occurrence: None)
  Receive Date: 20110531
  Receipt Date: 20110520
  Transmission Date: 20111010
  Serious: Yes (Hospitalization, Other)
  Sender: FDA-Public Use
  Company Number: JP-ROCHE-726177

PATIENT
  Sex: Female

DRUGS (43)
  1. TOCILIZUMAB [Suspect]
     Route: 041
     Dates: start: 20100511, end: 20100608
  2. TOCILIZUMAB [Suspect]
     Route: 041
     Dates: start: 20101101, end: 20101115
  3. TOCILIZUMAB [Suspect]
     Route: 041
     Dates: start: 20101213, end: 20101213
  4. TOCILIZUMAB [Suspect]
     Route: 041
     Dates: start: 20110111, end: 20110111
  5. PREDNISOLONE [Suspect]
     Route: 048
     Dates: start: 20091208, end: 20091214
  6. TOCILIZUMAB [Suspect]
     Route: 041
     Dates: start: 20110124, end: 20110124
  7. PREDNISOLONE [Suspect]
     Route: 048
     Dates: start: 20100415, end: 20100425
  8. PREDNISOLONE [Suspect]
     Route: 048
     Dates: start: 20100202, end: 20100414
  9. PREDNISOLONE [Suspect]
     Route: 048
     Dates: start: 20100628, end: 20100711
  10. FUNGIZONE [Concomitant]
     Route: 048
     Dates: start: 20100401
  11. PREDNISOLONE [Suspect]
     Route: 048
     Dates: start: 20100823, end: 20101003
  12. BONALON [Concomitant]
     Route: 048
     Dates: start: 20091119
  13. MUCODYNE [Concomitant]
     Dosage: FORM: PERORAL AGENT
     Route: 048
     Dates: start: 20100210
  14. THYRADIN [Concomitant]
     Dosage: FORM: PERORAL AGENT
     Route: 048
     Dates: start: 20100726, end: 20101128
  15. HOKUNALIN [Concomitant]
     Dosage: FORM TAPE
     Route: 062
     Dates: start: 20110124
  16. TOCILIZUMAB [Suspect]
     Route: 041
     Dates: start: 20101227, end: 20101227
  17. METHYLPEDNISOLONE SODIUM SUCCINATE [Suspect]
     Indication: CASTLEMAN'S DISEASE
     Route: 042
     Dates: start: 20091121, end: 20091123
  18. PREDNISOLONE [Suspect]
     Route: 048
     Dates: start: 20091222, end: 20100115
  19. PREDNISOLONE [Suspect]
     Route: 048
     Dates: start: 20110207
  20. MEDICON [Concomitant]
     Dosage: FORM: PERORAL AGENT
     Route: 048
     Dates: start: 20100210, end: 20100414
  21. TOCILIZUMAB [Suspect]
     Route: 041
     Dates: start: 20100427, end: 20100427
  22. TOCILIZUMAB [Suspect]
     Route: 041
     Dates: start: 20110221
  23. PREDNISOLONE [Suspect]
     Route: 048
     Dates: start: 20091215, end: 20091221
  24. PREDNISOLONE [Suspect]
     Route: 048
     Dates: start: 20100426, end: 20100510
  25. PREDNISOLONE [Suspect]
     Route: 048
     Dates: start: 20100511, end: 20100627
  26. PREDNISOLONE [Suspect]
     Route: 048
     Dates: start: 20101004, end: 20110206
  27. ASPIRIN [Concomitant]
     Route: 048
     Dates: start: 20091119
  28. BACTRIM [Concomitant]
     Dosage: FORM: PERORAL AGENT
     Route: 048
     Dates: start: 20091119, end: 20100906
  29. LIPITOR [Concomitant]
     Route: 048
     Dates: start: 20100511
  30. THYRADIN [Concomitant]
     Route: 048
     Dates: start: 20101129
  31. TOCILIZUMAB [Suspect]
     Indication: CASTLEMAN'S DISEASE
     Route: 041
     Dates: start: 20100318, end: 20100318
  32. TOCILIZUMAB [Suspect]
     Route: 041
     Dates: start: 20100401, end: 20100415
  33. TOCILIZUMAB [Suspect]
     Route: 041
     Dates: start: 20100823, end: 20100921
  34. TOCILIZUMAB [Suspect]
     Route: 041
     Dates: start: 20101129, end: 20101129
  35. TOCILIZUMAB [Suspect]
     Route: 041
     Dates: start: 20110207, end: 20110207
  36. PREDNISOLONE [Suspect]
     Route: 048
     Dates: start: 20100712, end: 20100725
  37. GASPORT [Concomitant]
     Route: 048
     Dates: start: 20100202
  38. ALENDRONATE SODIUM [Concomitant]
     Route: 048
     Dates: start: 20091119
  39. TOCILIZUMAB [Suspect]
     Route: 041
     Dates: start: 20100628, end: 20100809
  40. TOCILIZUMAB [Suspect]
     Route: 041
     Dates: start: 20101004, end: 20101018
  41. PREDNISOLONE [Suspect]
     Indication: CASTLEMAN'S DISEASE
     Route: 048
     Dates: start: 20091124, end: 20091207
  42. PREDNISOLONE [Suspect]
     Route: 048
     Dates: start: 20100726, end: 20100822
  43. GASPORT [Concomitant]
     Route: 048
     Dates: start: 20091119, end: 20100115

REACTIONS (3)
  - INTERSTITIAL LUNG DISEASE [None]
  - PSYCHOTIC DISORDER [None]
  - SEASONAL ALLERGY [None]
